FAERS Safety Report 23292186 (Version 1)
Quarter: 2023Q4

REPORT INFORMATION
  Report Type: Report from Study
  Country: IT (occurrence: IT)
  Receive Date: 20231213
  Receipt Date: 20231213
  Transmission Date: 20240110
  Serious: Yes (Life-Threatening)
  Sender: FDA-Public Use
  Company Number: None

PATIENT
  Age: 24 Year
  Sex: Female

DRUGS (6)
  1. XANAX [Suspect]
     Active Substance: ALPRAZOLAM
     Indication: Product used for unknown indication
     Dosage: UNK, DOSAGE: 1 BOTTLE
     Route: 065
     Dates: start: 20231102, end: 20231102
  2. IBUPROFEN [Suspect]
     Active Substance: IBUPROFEN
     Indication: Product used for unknown indication
     Dosage: 4800 MILLIGRAM (DOSAGE: 4800 MG)
     Route: 065
     Dates: start: 20231102, end: 20231102
  3. QUETIAPINE [Suspect]
     Active Substance: QUETIAPINE
     Indication: Product used for unknown indication
     Dosage: 200 MILLIGRAM (DOSAGE: 2000 MG)
     Route: 065
     Dates: start: 20231102, end: 20231102
  4. FLUVOXAMINE [Suspect]
     Active Substance: FLUVOXAMINE
     Indication: Product used for unknown indication
     Dosage: 500 MILLIGRAM (DOSAGE: 500 MG)
     Route: 065
     Dates: start: 20231102, end: 20231102
  5. FLURAZEPAM MONOHYDROCHLORIDE [Suspect]
     Active Substance: FLURAZEPAM MONOHYDROCHLORIDE
     Indication: Product used for unknown indication
     Dosage: 105 MILLIGRAM (DOSAGE: 105 MG)
     Route: 065
     Dates: start: 20231102, end: 20231102
  6. TACHIPIRINA [Suspect]
     Active Substance: ACETAMINOPHEN
     Indication: Product used for unknown indication
     Dosage: 4000 MILLIGRAM (DOSAGE: 4000 MG)
     Route: 065
     Dates: start: 20231102, end: 20231102

REACTIONS (3)
  - Coma [Unknown]
  - Intentional self-injury [Unknown]
  - Drug abuse [Unknown]

NARRATIVE: CASE EVENT DATE: 20231102
